FAERS Safety Report 5114869-9 (Version None)
Quarter: 2006Q3

REPORT INFORMATION
  Report Type: 
  Country: None (occurrence: None)
  Receive Date: 20060921
  Receipt Date: 20060905
  Transmission Date: 20061208
  Serious: Yes (Other)
  Sender: FDA-Public Use
  Company Number: ACO_0267_2006

PATIENT
  Sex: Female

DRUGS (8)
  1. SIRDALUD [Suspect]
     Indication: MUSCLE DISORDER
     Dosage: VAR QDAY PO
     Route: 048
     Dates: start: 20040101, end: 20060501
  2. CLINDAMYCIN [Suspect]
     Indication: BREAST ABSCESS
     Dosage: 600 MG ONCE IV
     Route: 042
     Dates: start: 20060501
  3. CLINDAMYCIN [Suspect]
     Indication: BREAST ABSCESS
     Dosage: 300 MG TID IV
     Route: 042
  4. CLINDAMYCIN [Suspect]
     Indication: SURGERY
     Dosage: 300 MG TID IV
     Route: 042
  5. CLINDAMYCIN [Suspect]
     Indication: BREAST ABSCESS
     Dosage: 300 MG TID PO
     Route: 048
     Dates: start: 20060101
  6. CLINDAMYCIN [Suspect]
     Indication: SURGERY
     Dosage: 300 MG TID PO
     Route: 048
     Dates: start: 20060101
  7. CIPROFLOXACIN [Suspect]
     Dosage: DF
     Dates: start: 20050101
  8. ANTIBIOTICS [Concomitant]

REACTIONS (10)
  - BREAST ABSCESS [None]
  - FATIGUE [None]
  - FEELING ABNORMAL [None]
  - HALLUCINATION [None]
  - MUSCULAR WEAKNESS [None]
  - MUSCULOSKELETAL DISORDER [None]
  - NERVE STIMULATION TEST ABNORMAL [None]
  - NIGHTMARE [None]
  - SLEEP DISORDER [None]
  - SUDDEN ONSET OF SLEEP [None]
